FAERS Safety Report 5141369-2 (Version None)
Quarter: 2006Q4

REPORT INFORMATION
  Report Type: 
  Country: None (occurrence: None)
  Receive Date: 20061026
  Receipt Date: 20061013
  Transmission Date: 20070319
  Serious: Yes (Other)
  Sender: FDA-Public Use
  Company Number: 2006126768

PATIENT

DRUGS (2)
  1. LYRICA [Suspect]
     Indication: DIABETIC NEUROPATHY
  2. ANTI-DIABETICS (ANTI-DIABETICS) [Concomitant]

REACTIONS (4)
  - COMA [None]
  - PARKINSONISM [None]
  - PHARMACEUTICAL PRODUCT COMPLAINT [None]
  - SECRETION DISCHARGE [None]
